FAERS Safety Report 13332346 (Version 2)
Quarter: 2017Q2

REPORT INFORMATION
  Report Type: Report from Study
  Country: CN (occurrence: CN)
  Receive Date: 20170314
  Receipt Date: 20170510
  Transmission Date: 20170830
  Serious: Yes (Other)
  Sender: FDA-Public Use
  Company Number: PHHY2015CN170041

PATIENT
  Age: 37 Year
  Sex: Male

DRUGS (162)
  1. BASILIXIMAB [Suspect]
     Active Substance: BASILIXIMAB
     Indication: RENAL TRANSPLANT
     Dosage: 20 MG, QD
     Route: 065
     Dates: start: 20151204, end: 20151204
  2. SODIUM BICARBONATE. [Concomitant]
     Active Substance: SODIUM BICARBONATE
     Indication: PROPHYLAXIS
     Dosage: 250 ML, QD
     Route: 042
     Dates: start: 20150901, end: 20150902
  3. AARAM//ALPRAZOLAM [Concomitant]
     Indication: SEDATIVE THERAPY
     Dosage: 0.4 MG, QD
     Route: 048
     Dates: start: 20150902, end: 20150908
  4. FUROSEMIDE. [Concomitant]
     Active Substance: FUROSEMIDE
     Dosage: 20 MG, QD
     Route: 042
     Dates: start: 20151215, end: 20151216
  5. OMEPRAZOLE. [Concomitant]
     Active Substance: OMEPRAZOLE
     Indication: ANTACID THERAPY
     Dosage: 40 MG, QD
     Route: 042
     Dates: start: 20150902, end: 20150908
  6. DIAZEPAM. [Concomitant]
     Active Substance: DIAZEPAM
     Indication: PROPHYLAXIS
     Dosage: 5 MG, SOS
     Route: 048
     Dates: start: 20150901, end: 20150901
  7. DIAZEPAM. [Concomitant]
     Active Substance: DIAZEPAM
     Dosage: 5 MG, QD
     Route: 048
     Dates: start: 20151103, end: 20151103
  8. HEPARIN SODIUM. [Concomitant]
     Active Substance: HEPARIN SODIUM
     Indication: THROMBOSIS PROPHYLAXIS
     Dosage: 12500 IU, QD
     Route: 042
     Dates: start: 20150903, end: 20150908
  9. SUCRALFATE. [Concomitant]
     Active Substance: SUCRALFATE
     Dosage: 750 MG, QD
     Route: 048
     Dates: start: 20151103, end: 20151103
  10. IMIPENEM/CILASTATINE [Concomitant]
     Active Substance: CILASTATIN SODIUM\IMIPENEM
     Dosage: 500 MG, PRN
     Route: 042
     Dates: start: 20151204, end: 20151204
  11. HEPATITIS B IMMUNE GLOBULIN [Concomitant]
     Active Substance: HUMAN HEPATITIS B VIRUS IMMUNE GLOBULIN
     Dosage: 400 IU, QD
     Route: 030
     Dates: start: 20151205, end: 20151205
  12. INSULIN [Concomitant]
     Active Substance: INSULIN NOS
     Dosage: 12 IU, QD
     Route: 042
     Dates: start: 20151103, end: 20151104
  13. INSULIN [Concomitant]
     Active Substance: INSULIN NOS
     Dosage: 12 IU, QD
     Route: 042
     Dates: start: 20151204, end: 20151205
  14. INSULIN [Concomitant]
     Active Substance: INSULIN NOS
     Dosage: 6 IU, QD
     Route: 042
     Dates: start: 20151205, end: 20151205
  15. LEVOFLOXACIN. [Concomitant]
     Active Substance: LEVOFLOXACIN
     Indication: INFECTION PROPHYLAXIS
     Dosage: 500 MG, QD
     Route: 042
     Dates: start: 20151107
  16. MOSAPRIDE CITRATE [Concomitant]
     Active Substance: MOSAPRIDE CITRATE
     Indication: ABDOMINAL DISTENSION
     Dosage: 5 MG, PRN
     Route: 048
     Dates: start: 20151208, end: 20151208
  17. LEUCOGEN [Concomitant]
     Active Substance: LEUCOGEN
     Indication: LEUKOCYTOSIS
     Dosage: 40 MG, TID
     Route: 048
     Dates: start: 20151208, end: 20151216
  18. VITAMIN B4 [Concomitant]
     Indication: WHITE BLOOD CELL DISORDER
     Dosage: 20 MG, TID
     Route: 048
     Dates: start: 20151208, end: 20151216
  19. SODIUM BICARBONATE. [Concomitant]
     Active Substance: SODIUM BICARBONATE
     Dosage: 250 ML, PRN
     Route: 042
     Dates: start: 20151204, end: 20151204
  20. PMS-PROMETHAZINE [Concomitant]
     Dosage: 2 DF, TID
     Route: 048
     Dates: start: 20151015
  21. SULFAMETHOXAZOLE [Concomitant]
     Active Substance: SULFAMETHOXAZOLE
     Indication: INFECTION PROPHYLAXIS
     Dosage: 240 MG, QD
     Route: 048
     Dates: start: 20150909
  22. FUROSEMIDE. [Concomitant]
     Active Substance: FUROSEMIDE
     Dosage: 20 MG, QD
     Route: 042
     Dates: start: 20151015, end: 20151015
  23. FUROSEMIDE. [Concomitant]
     Active Substance: FUROSEMIDE
     Dosage: 80 MG, QD
     Route: 042
     Dates: start: 20151103, end: 20151103
  24. FUROSEMIDE. [Concomitant]
     Active Substance: FUROSEMIDE
     Dosage: 40 MG, QD
     Route: 042
     Dates: start: 20151206, end: 20151209
  25. TALCID [Concomitant]
     Active Substance: HYDROTALCITE
     Indication: PROPHYLAXIS
     Dosage: 1000 MG, QD
     Route: 048
     Dates: start: 20151015
  26. CASPOFUNGIN ACETATE. [Concomitant]
     Active Substance: CASPOFUNGIN ACETATE
     Dosage: 50 MG, QD
     Route: 042
     Dates: start: 20151205, end: 20151213
  27. IMIPENEM/CILASTATINE [Concomitant]
     Active Substance: CILASTATIN SODIUM\IMIPENEM
     Dosage: 500 MG, Q8H
     Route: 042
     Dates: start: 20151014, end: 20151020
  28. IMIPENEM/CILASTATINE [Concomitant]
     Active Substance: CILASTATIN SODIUM\IMIPENEM
     Dosage: 500 MG, Q8H
     Route: 042
     Dates: start: 20151103, end: 20151107
  29. IMIPENEM/CILASTATINE [Concomitant]
     Active Substance: CILASTATIN SODIUM\IMIPENEM
     Dosage: 500 MG, Q8H
     Route: 042
     Dates: start: 20151205, end: 20151213
  30. AMPHOTERICIN B, LIPOSOME [Concomitant]
     Active Substance: AMPHOTERICIN B
     Indication: INFECTION PROPHYLAXIS
     Dosage: 10 MG, QD
     Route: 042
     Dates: start: 20151015
  31. CEFOPERAZONE W/SULBACTAM SODIUM [Concomitant]
     Dosage: 2 G, Q8H
     Route: 042
     Dates: start: 20151107
  32. ALPROSTADIL. [Concomitant]
     Active Substance: ALPROSTADIL
     Dosage: 20 UG, QD
     Route: 042
     Dates: start: 20151208, end: 20151219
  33. CLONIDINE. [Concomitant]
     Active Substance: CLONIDINE
     Indication: BLOOD PRESSURE INCREASED
     Dosage: 75 UG, QD
     Route: 048
     Dates: start: 20151113, end: 20151113
  34. LOSEC                                   /CAN/ [Concomitant]
     Indication: ANTACID THERAPY
     Dosage: 40 MG, QD
     Route: 042
     Dates: start: 20151104
  35. VITA K1 [Concomitant]
     Indication: HAEMORRHAGE PROPHYLAXIS
     Dosage: 30 MG, QD
     Route: 042
     Dates: start: 20151107
  36. NIFEDIPINE. [Concomitant]
     Active Substance: NIFEDIPINE
     Indication: BLOOD PRESSURE INCREASED
     Dosage: 10 MG, QD
     Route: 048
     Dates: start: 20151108, end: 20151110
  37. GLUCOSE [Concomitant]
     Active Substance: DEXTROSE
     Indication: HAEMODIALYSIS
     Dosage: 20 G, QD
     Route: 042
     Dates: start: 20151210, end: 20151210
  38. ENOXAPARIN SODIUM. [Concomitant]
     Active Substance: ENOXAPARIN SODIUM
     Indication: HAEMODIALYSIS
     Dosage: 4000 IU, QD
     Route: 042
     Dates: start: 20151210, end: 20151210
  39. CRAVIT [Concomitant]
     Active Substance: LEVOFLOXACIN
     Indication: INFECTION
     Dosage: 500 MG, QD
     Route: 048
     Dates: start: 20161213
  40. ENEMA (SODIUM PHOSPHATE, DIBASIC\SODIUM PHOSPHATE, MONOBASIC) [Concomitant]
     Active Substance: SODIUM PHOSPHATE, DIBASIC\SODIUM PHOSPHATE, MONOBASIC
     Dosage: 60 ML, PRN
     Route: 054
     Dates: start: 20151218, end: 20151218
  41. TACROLIMUS. [Suspect]
     Active Substance: TACROLIMUS
     Dosage: 6 MG, QD
     Route: 065
     Dates: start: 20151208, end: 20151217
  42. METHYLPREDNISOLONE. [Suspect]
     Active Substance: METHYLPREDNISOLONE
     Indication: RENAL TRANSPLANT
     Dosage: 780 MG, QD
     Route: 065
     Dates: start: 20151204, end: 20151204
  43. MANNITOL. [Concomitant]
     Active Substance: MANNITOL
     Dosage: 125 ML, UNK
     Route: 042
     Dates: start: 20151204, end: 20151204
  44. AARAM//ALPRAZOLAM [Concomitant]
     Dosage: 0.4 MG, QD
     Route: 048
     Dates: start: 20151015
  45. DILTIAZEM HYDROCHLORIDE. [Concomitant]
     Active Substance: DILTIAZEM HYDROCHLORIDE
     Dosage: 30 MG, BID
     Route: 048
     Dates: start: 20151015
  46. FUROSEMIDE. [Concomitant]
     Active Substance: FUROSEMIDE
     Dosage: 80 MG, PRN
     Route: 042
     Dates: start: 20151204, end: 20151204
  47. GANCICLOVIR. [Concomitant]
     Active Substance: GANCICLOVIR
     Indication: ANTIVIRAL TREATMENT
     Dosage: 500 MG, PRN
     Route: 048
     Dates: start: 20151219
  48. DIAZEPAM. [Concomitant]
     Active Substance: DIAZEPAM
     Dosage: 5 MG, QD
     Route: 048
     Dates: start: 20151204, end: 20151204
  49. HEPARIN SODIUM. [Concomitant]
     Active Substance: HEPARIN SODIUM
     Dosage: 12500 IU, W1D3
     Route: 042
     Dates: start: 20151207, end: 20151219
  50. ALIN//DEXAMETHASONE [Concomitant]
     Dosage: 10 MG, SOS
     Route: 042
     Dates: start: 20151103, end: 20151103
  51. ALIN//DEXAMETHASONE [Concomitant]
     Dosage: 10 MG, QD
     Route: 042
     Dates: start: 20151204, end: 20151204
  52. POTASSIUM CHLORIDE. [Concomitant]
     Active Substance: POTASSIUM CHLORIDE
     Indication: ELECTROLYTE IMBALANCE
     Dosage: 6 ML, QD
     Route: 042
     Dates: start: 20151014, end: 20151014
  53. POTASSIUM CHLORIDE. [Concomitant]
     Active Substance: POTASSIUM CHLORIDE
     Dosage: 18 ML, QD
     Route: 042
     Dates: start: 20151106, end: 20151106
  54. GLUCOSE [Concomitant]
     Active Substance: DEXTROSE
     Indication: ELECTROLYTE SUBSTITUTION THERAPY
     Dosage: 2000 ML, QD
     Route: 042
     Dates: start: 20151204, end: 20151205
  55. ENEMA (SODIUM PHOSPHATE, DIBASIC\SODIUM PHOSPHATE, MONOBASIC) [Concomitant]
     Active Substance: SODIUM PHOSPHATE, DIBASIC\SODIUM PHOSPHATE, MONOBASIC
     Dosage: 60 ML, PRN
     Route: 054
     Dates: start: 20151212, end: 20151212
  56. ENEMA (SODIUM PHOSPHATE, DIBASIC\SODIUM PHOSPHATE, MONOBASIC) [Concomitant]
     Active Substance: SODIUM PHOSPHATE, DIBASIC\SODIUM PHOSPHATE, MONOBASIC
     Dosage: 60 ML, PRN
     Route: 054
     Dates: start: 20151207, end: 20151207
  57. TACROLIMUS. [Suspect]
     Active Substance: TACROLIMUS
     Indication: RENAL TRANSPLANT
     Dosage: 7 MG, QD
     Route: 065
     Dates: start: 20151205, end: 20151207
  58. TACROLIMUS. [Suspect]
     Active Substance: TACROLIMUS
     Dosage: 4 MG, QD
     Route: 065
     Dates: start: 20151222, end: 20151228
  59. METHYLPREDNISOLONE. [Suspect]
     Active Substance: METHYLPREDNISOLONE
     Dosage: 660 MG, QD
     Route: 065
     Dates: start: 20151205, end: 20151205
  60. METHYLPREDNISOLONE. [Suspect]
     Active Substance: METHYLPREDNISOLONE
     Dosage: 40 MG, QD
     Route: 065
     Dates: start: 20151208, end: 20151219
  61. PREDNISONE. [Suspect]
     Active Substance: PREDNISONE
     Indication: IMMUNOSUPPRESSANT DRUG THERAPY
     Dosage: 20 MG, QD
     Route: 065
     Dates: start: 20151219, end: 20151221
  62. PREDNISONE. [Suspect]
     Active Substance: PREDNISONE
     Dosage: 10 MG, QD
     Route: 065
     Dates: start: 20160112
  63. SODIUM CHLORIDE. [Concomitant]
     Active Substance: SODIUM CHLORIDE
     Indication: PROPHYLAXIS
     Dosage: 12 ML, QD
     Route: 042
     Dates: start: 20150901, end: 20150902
  64. MANNITOL. [Concomitant]
     Active Substance: MANNITOL
     Dosage: 125 ML, SOS
     Route: 042
     Dates: start: 20151103, end: 20151103
  65. MAGNESIN//MAGNESIUM SULFATE [Concomitant]
     Indication: PROPHYLAXIS
     Dosage: 3.2 ML, QD
     Route: 042
     Dates: start: 20150901, end: 20150902
  66. AARAM//ALPRAZOLAM [Concomitant]
     Dosage: 0.4 MG, QN
     Route: 048
     Dates: start: 20151104
  67. AARAM//ALPRAZOLAM [Concomitant]
     Dosage: 0.4 MG, QN
     Route: 048
     Dates: start: 20151205, end: 20151219
  68. AMIKACIN [Concomitant]
     Active Substance: AMIKACIN
     Indication: PROPHYLAXIS
     Dosage: 400 MG, QD
     Route: 042
     Dates: start: 20150901, end: 20150901
  69. PMS-PROMETHAZINE [Concomitant]
     Dosage: 2 DF, TID
     Route: 048
     Dates: start: 20151104
  70. PMS-PROMETHAZINE [Concomitant]
     Dosage: 2 DF, TID
     Route: 048
     Dates: start: 20151205, end: 20151219
  71. FUROSEMIDE. [Concomitant]
     Active Substance: FUROSEMIDE
     Dosage: 80 MG, QD
     Route: 042
     Dates: start: 20151014, end: 20151014
  72. FUROSEMIDE. [Concomitant]
     Active Substance: FUROSEMIDE
     Dosage: 40 MG, QD
     Route: 042
     Dates: start: 20151018, end: 20151019
  73. TALCID [Concomitant]
     Active Substance: HYDROTALCITE
     Dosage: 1000 MG, QD
     Route: 048
     Dates: start: 20151205
  74. SUCRALFATE. [Concomitant]
     Active Substance: SUCRALFATE
     Dosage: 750 MG, UNK
     Route: 048
     Dates: start: 20151204, end: 20151204
  75. IMIPENEM/CILASTATINE [Concomitant]
     Active Substance: CILASTATIN SODIUM\IMIPENEM
     Dosage: 500 MG, BID
     Route: 042
     Dates: end: 20151219
  76. HEPATITIS B IMMUNE GLOBULIN [Concomitant]
     Active Substance: HUMAN HEPATITIS B VIRUS IMMUNE GLOBULIN
     Indication: INFECTION PROPHYLAXIS
     Dosage: 400 IU, QD
     Route: 030
     Dates: start: 20151014, end: 20151020
  77. HEPATITIS B IMMUNE GLOBULIN [Concomitant]
     Active Substance: HUMAN HEPATITIS B VIRUS IMMUNE GLOBULIN
     Dosage: 400 IU, QD
     Route: 030
     Dates: start: 20151104, end: 20151104
  78. INSULIN [Concomitant]
     Active Substance: INSULIN NOS
     Indication: ELECTROLYTE IMBALANCE
     Dosage: 6 IU, QD
     Route: 042
     Dates: start: 20151014, end: 20151014
  79. MUCOSOLVAN [Concomitant]
     Active Substance: AMBROXOL HYDROCHLORIDE
     Indication: SPUTUM RETENTION
     Dosage: 30 MG, TID
     Route: 048
     Dates: start: 20151105
  80. ENEMA (SODIUM PHOSPHATE, DIBASIC\SODIUM PHOSPHATE, MONOBASIC) [Concomitant]
     Active Substance: SODIUM PHOSPHATE, DIBASIC\SODIUM PHOSPHATE, MONOBASIC
     Indication: CONSTIPATION PROPHYLAXIS
     Dosage: 40 ML, PRN
     Route: 054
     Dates: start: 20151217, end: 20151217
  81. TACROLIMUS. [Suspect]
     Active Substance: TACROLIMUS
     Dosage: 5 MG, QD
     Route: 065
     Dates: start: 20151218, end: 20151221
  82. TACROLIMUS. [Suspect]
     Active Substance: TACROLIMUS
     Dosage: 3 MG, QD
     Route: 065
     Dates: start: 20160112
  83. PREDNISONE. [Suspect]
     Active Substance: PREDNISONE
     Dosage: 15 MG, QD
     Route: 065
     Dates: start: 20151222, end: 20160111
  84. SODIUM BICARBONATE. [Concomitant]
     Active Substance: SODIUM BICARBONATE
     Indication: ELECTROLYTE IMBALANCE
     Dosage: 125 ML, QD
     Route: 042
     Dates: start: 20151014, end: 20151014
  85. SODIUM BICARBONATE. [Concomitant]
     Active Substance: SODIUM BICARBONATE
     Indication: ANTACID THERAPY
     Dosage: 1000 MG, BID
     Route: 048
     Dates: start: 20150909
  86. SODIUM BICARBONATE. [Concomitant]
     Active Substance: SODIUM BICARBONATE
     Indication: PROPHYLAXIS
     Dosage: 1000 MG, PRN
     Route: 048
     Dates: start: 20151219
  87. AMIKACIN [Concomitant]
     Active Substance: AMIKACIN
     Dosage: 400 MG, PRN
     Route: 042
     Dates: start: 20151204, end: 20151204
  88. FUROSEMIDE. [Concomitant]
     Active Substance: FUROSEMIDE
     Dosage: 20 MG, BID
     Route: 042
     Dates: start: 20151205, end: 20151206
  89. FUROSEMIDE. [Concomitant]
     Active Substance: FUROSEMIDE
     Dosage: 40 MG, QD
     Route: 042
     Dates: start: 20151211, end: 20151215
  90. GANCICLOVIR. [Concomitant]
     Active Substance: GANCICLOVIR
     Indication: INFECTION PROPHYLAXIS
     Dosage: 500 MG, TID
     Route: 048
     Dates: start: 20150909
  91. METOCLOPRAMIDE. [Concomitant]
     Active Substance: METOCLOPRAMIDE
     Indication: ANTIEMETIC SUPPORTIVE CARE
     Dosage: 10 MG, QD
     Route: 030
     Dates: start: 20150903, end: 20150903
  92. TEICOPLANIN [Concomitant]
     Active Substance: TEICOPLANIN
     Dosage: 200 MG, QD
     Route: 042
     Dates: start: 20151014
  93. HEPATITIS B IMMUNE GLOBULIN [Concomitant]
     Active Substance: HUMAN HEPATITIS B VIRUS IMMUNE GLOBULIN
     Indication: ANTIVIRAL PROPHYLAXIS
     Dosage: 400 IU, QD
     Route: 030
     Dates: start: 20150903, end: 20150903
  94. COMPOUND SODIUM CHLORIDE           /06440701/ [Concomitant]
     Indication: FLUID REPLACEMENT
     Dosage: 500 MG, QD
     Route: 042
     Dates: start: 20151103
  95. MUKOPOLYSACKARIDPOLYSULFAT [Concomitant]
     Indication: PROPHYLAXIS
     Dosage: 14 G, PRN
     Route: 065
     Dates: start: 20151214, end: 20151214
  96. MYFORTIC [Suspect]
     Active Substance: MYCOPHENOLATE SODIUM
     Indication: DELAYED GRAFT FUNCTION
     Dosage: 1080 MG, QD
     Route: 065
     Dates: start: 20151210, end: 20160111
  97. TACROLIMUS. [Suspect]
     Active Substance: TACROLIMUS
     Dosage: 2 MG, QD
     Route: 065
     Dates: start: 20151229, end: 20160111
  98. MANNITOL. [Concomitant]
     Active Substance: MANNITOL
     Indication: PROPHYLAXIS
     Dosage: 125 ML, SOS
     Route: 042
     Dates: start: 20150901, end: 20150901
  99. SODIUM BICARBONATE. [Concomitant]
     Active Substance: SODIUM BICARBONATE
     Indication: URINE ALKALINISATION THERAPY
     Dosage: 250 ML, QD
     Route: 042
     Dates: start: 20151103, end: 20151104
  100. SULFAMETHOXAZOLE [Concomitant]
     Active Substance: SULFAMETHOXAZOLE
     Dosage: 240 MG, PRN
     Route: 048
     Dates: start: 20151219
  101. DILTIAZEM HYDROCHLORIDE. [Concomitant]
     Active Substance: DILTIAZEM HYDROCHLORIDE
     Dosage: 30 MG, BID
     Route: 048
     Dates: start: 20151104
  102. DILTIAZEM HYDROCHLORIDE. [Concomitant]
     Active Substance: DILTIAZEM HYDROCHLORIDE
     Dosage: 30 MG, BID
     Route: 048
     Dates: start: 20151205
  103. FUROSEMIDE. [Concomitant]
     Active Substance: FUROSEMIDE
     Dosage: 40 MG, QD
     Route: 042
     Dates: start: 20151107, end: 20151107
  104. FUROSEMIDE. [Concomitant]
     Active Substance: FUROSEMIDE
     Dosage: 20 MG, QD
     Route: 042
     Dates: start: 20151217, end: 20151218
  105. TALCID [Concomitant]
     Active Substance: HYDROTALCITE
     Indication: ANTACID THERAPY
     Dosage: 1000 MG, QD
     Route: 048
     Dates: start: 20150909
  106. TEICOPLANIN [Concomitant]
     Active Substance: TEICOPLANIN
     Indication: INFECTION PROPHYLAXIS
     Dosage: 200 MG, QD
     Route: 042
     Dates: start: 20150902, end: 20150908
  107. DIAZEPAM. [Concomitant]
     Active Substance: DIAZEPAM
     Indication: SEDATION
     Dosage: 5 MG, QD
     Route: 048
     Dates: start: 20151014, end: 20151014
  108. HEPARIN SODIUM. [Concomitant]
     Active Substance: HEPARIN SODIUM
     Dosage: 12500 IU, W2D6
     Route: 042
     Dates: start: 20151206, end: 20151207
  109. CASPOFUNGIN ACETATE. [Concomitant]
     Active Substance: CASPOFUNGIN ACETATE
     Dosage: 50 MG, QD
     Route: 042
     Dates: start: 20151014, end: 20151014
  110. CALCIUM GLUCONATE. [Concomitant]
     Active Substance: CALCIUM GLUCONATE
     Indication: PROPHYLAXIS
     Dosage: 3 G, QD
     Route: 042
     Dates: start: 20151104, end: 20151105
  111. IMIPENEM/CILASTATINE [Concomitant]
     Active Substance: CILASTATIN SODIUM\IMIPENEM
     Indication: INFECTION PROPHYLAXIS
     Dosage: 500 MG, Q8H
     Route: 042
     Dates: start: 20150901, end: 20150908
  112. INSULIN [Concomitant]
     Active Substance: INSULIN NOS
     Indication: PROPHYLAXIS
     Dosage: 12 IU, QD
     Route: 042
     Dates: start: 20150901, end: 20150902
  113. CEFOPERAZONE W/SULBACTAM SODIUM [Concomitant]
     Indication: INFECTION PROPHYLAXIS
     Dosage: 2000 MG, Q8H
     Route: 042
     Dates: start: 20151020
  114. FELODIPINE. [Concomitant]
     Active Substance: FELODIPINE
     Indication: BLOOD PRESSURE INCREASED
     Dosage: 5 MG, QD
     Route: 048
     Dates: start: 20151110
  115. ALPROSTADIL. [Concomitant]
     Active Substance: ALPROSTADIL
     Indication: VASODILATATION
     Dosage: 20 UG, QD
     Route: 042
     Dates: start: 20151110
  116. NIFEDIPINE. [Concomitant]
     Active Substance: NIFEDIPINE
     Dosage: 10 MG, QD
     Route: 048
     Dates: start: 20151112, end: 20151115
  117. MACROGOL 4000 [Concomitant]
     Active Substance: POLYETHYLENE GLYCOL 4000
     Dosage: 10 G, BID
     Route: 048
     Dates: start: 20151209, end: 20151215
  118. MOSAPRIDE CITRATE [Concomitant]
     Active Substance: MOSAPRIDE CITRATE
     Indication: ABDOMINAL DISCOMFORT
  119. MYFORTIC [Suspect]
     Active Substance: MYCOPHENOLATE SODIUM
     Indication: RENAL TRANSPLANT
     Dosage: 2160 MG, QD
     Route: 065
     Dates: start: 20151205, end: 20151209
  120. MYFORTIC [Suspect]
     Active Substance: MYCOPHENOLATE SODIUM
     Dosage: 720 MG, QD
     Route: 065
     Dates: start: 20160112
  121. SODIUM CHLORIDE. [Concomitant]
     Active Substance: SODIUM CHLORIDE
     Indication: ELECTROLYTE IMBALANCE
     Dosage: 500 ML, PRN
     Route: 042
     Dates: start: 20151204, end: 20151204
  122. MANNITOL. [Concomitant]
     Active Substance: MANNITOL
     Dosage: 125 ML, QD
     Route: 042
     Dates: start: 20151014, end: 20151014
  123. MAGNESIN//MAGNESIUM SULFATE [Concomitant]
     Indication: ELECTROLYTE IMBALANCE
     Dosage: 1.6 ML, QD
     Route: 042
     Dates: start: 20151014, end: 20151014
  124. MAGNESIN//MAGNESIUM SULFATE [Concomitant]
     Dosage: 3.2 ML, QD
     Route: 042
     Dates: start: 20151103, end: 20151104
  125. MAGNESIN//MAGNESIUM SULFATE [Concomitant]
     Dosage: 4.8 ML, QD
     Route: 042
     Dates: start: 20151106, end: 20151106
  126. MAGNESIN//MAGNESIUM SULFATE [Concomitant]
     Dosage: 3.2 ML, PRN
     Route: 042
     Dates: start: 20151204, end: 20151204
  127. SODIUM BICARBONATE. [Concomitant]
     Active Substance: SODIUM BICARBONATE
     Indication: URINE ALKALINISATION THERAPY
  128. AMIKACIN [Concomitant]
     Active Substance: AMIKACIN
     Indication: INFECTION PROPHYLAXIS
     Dosage: 400 MG, QD
     Route: 030
     Dates: start: 20151014, end: 20151014
  129. PMS-PROMETHAZINE [Concomitant]
     Indication: SEDATIVE THERAPY
     Dosage: 2 DF, TID
     Route: 048
     Dates: start: 20150902, end: 20150908
  130. FUROSEMIDE. [Concomitant]
     Active Substance: FUROSEMIDE
     Indication: DIURETIC THERAPY
     Dosage: 80 MG, SOS
     Route: 042
     Dates: start: 20150901, end: 20150901
  131. FUROSEMIDE. [Concomitant]
     Active Substance: FUROSEMIDE
     Indication: PROPHYLAXIS
     Dosage: 40 MG, QD
     Route: 042
     Dates: start: 20150906, end: 20150906
  132. HEPARIN SODIUM. [Concomitant]
     Active Substance: HEPARIN SODIUM
     Indication: ANTICOAGULANT THERAPY
     Dosage: 12500 IU, W2D4
     Route: 042
     Dates: start: 20151016
  133. CASPOFUNGIN ACETATE. [Concomitant]
     Active Substance: CASPOFUNGIN ACETATE
     Dosage: 50 MG, QD
     Route: 042
     Dates: start: 20151103, end: 20151114
  134. CASPOFUNGIN ACETATE. [Concomitant]
     Active Substance: CASPOFUNGIN ACETATE
     Dosage: 50 MG, PRN
     Route: 042
     Dates: start: 20151204, end: 20151204
  135. SUCRALFATE. [Concomitant]
     Active Substance: SUCRALFATE
     Indication: PROPHYLAXIS
     Dosage: 750 MG, QD
     Route: 048
     Dates: start: 20151014, end: 20151014
  136. CALCIUM GLUCONATE. [Concomitant]
     Active Substance: CALCIUM GLUCONATE
     Indication: NUTRITIONAL SUPPLEMENTATION
     Dosage: 3000 MG, QD
     Route: 042
     Dates: start: 20151015, end: 20151016
  137. INSULIN [Concomitant]
     Active Substance: INSULIN NOS
     Dosage: 18 IU, QD
     Route: 042
     Dates: start: 20151106, end: 20151106
  138. LOSEC                                   /CAN/ [Concomitant]
     Indication: ANTACID THERAPY
     Dosage: 40 MG, QD
     Route: 048
     Dates: start: 20151015
  139. TIGECYCLINE. [Concomitant]
     Active Substance: TIGECYCLINE
     Indication: INFECTION PROPHYLAXIS
     Dosage: 100 MG, Q12H
     Route: 042
     Dates: start: 20151019
  140. ALIN//DEXAMETHASONE [Concomitant]
     Indication: PROPHYLAXIS
     Dosage: 10 MG, QD
     Route: 042
     Dates: start: 20151014, end: 20151014
  141. LOSEC                                   /CAN/ [Concomitant]
     Indication: PROPHYLAXIS
  142. MACROGOL 4000 [Concomitant]
     Active Substance: POLYETHYLENE GLYCOL 4000
     Indication: CONSTIPATION PROPHYLAXIS
     Dosage: 10 G, TID
     Route: 048
     Dates: start: 20150909
  143. GLUCOSE [Concomitant]
     Active Substance: DEXTROSE
     Dosage: 1000 ML, QD
     Route: 042
     Dates: start: 20151205, end: 20151205
  144. ENEMA (SODIUM PHOSPHATE, DIBASIC\SODIUM PHOSPHATE, MONOBASIC) [Concomitant]
     Active Substance: SODIUM PHOSPHATE, DIBASIC\SODIUM PHOSPHATE, MONOBASIC
     Dosage: 40 ML, PRN
     Route: 054
     Dates: start: 20151209, end: 20151210
  145. ENEMA (SODIUM PHOSPHATE, DIBASIC\SODIUM PHOSPHATE, MONOBASIC) [Concomitant]
     Active Substance: SODIUM PHOSPHATE, DIBASIC\SODIUM PHOSPHATE, MONOBASIC
     Dosage: 20 ML, PRN
     Route: 054
     Dates: start: 20151206, end: 20151206
  146. SODIUM PHOSPHATE [Concomitant]
     Active Substance: SODIUM PHOSPHATE
     Indication: GASTRIC LAVAGE
     Dosage: 133 ML, PRN
     Route: 042
     Dates: start: 20151204, end: 20151204
  147. BASILIXIMAB [Suspect]
     Active Substance: BASILIXIMAB
     Dosage: 20 MG, QD
     Route: 065
     Dates: start: 20151208, end: 20151208
  148. MAGNESIN//MAGNESIUM SULFATE [Concomitant]
     Dosage: 1.6 ML, PRN
     Route: 042
     Dates: start: 20151205, end: 20151205
  149. AMIKACIN [Concomitant]
     Active Substance: AMIKACIN
     Dosage: 400 MG, SOS
     Route: 042
     Dates: start: 20151103, end: 20151103
  150. DILTIAZEM HYDROCHLORIDE. [Concomitant]
     Active Substance: DILTIAZEM HYDROCHLORIDE
     Indication: BLOOD PRESSURE INCREASED
     Dosage: 30 MG, BID
     Route: 048
     Dates: start: 20150902
  151. METOCLOPRAMIDE. [Concomitant]
     Active Substance: METOCLOPRAMIDE
     Dosage: 10 MG, QD
     Route: 030
     Dates: start: 20151205, end: 20151206
  152. OMEPRAZOLE. [Concomitant]
     Active Substance: OMEPRAZOLE
     Indication: PROPHYLAXIS
     Dosage: 40 MG, QD
     Route: 042
     Dates: start: 20151205, end: 20151219
  153. HEPARIN SODIUM. [Concomitant]
     Active Substance: HEPARIN SODIUM
     Indication: RENAL DISORDER
     Dosage: 12500 IU, W2D2
     Route: 042
     Dates: start: 20151105
  154. CASPOFUNGIN ACETATE. [Concomitant]
     Active Substance: CASPOFUNGIN ACETATE
     Indication: INFECTION PROPHYLAXIS
     Dosage: 50 MG, QD
     Route: 042
     Dates: start: 20150901, end: 20150908
  155. SUCRALFATE. [Concomitant]
     Active Substance: SUCRALFATE
     Indication: ANTACID THERAPY
     Dosage: 750 MG, QD
     Route: 048
     Dates: start: 20150901, end: 20150901
  156. CALCIUM GLUCONATE. [Concomitant]
     Active Substance: CALCIUM GLUCONATE
     Indication: ELECTROLYTE IMBALANCE
     Dosage: 3 G, QD
     Route: 042
     Dates: start: 20150902, end: 20150903
  157. CALCIUM GLUCONATE. [Concomitant]
     Active Substance: CALCIUM GLUCONATE
     Dosage: 3 G, QD
     Route: 042
     Dates: start: 20151205, end: 20151206
  158. CALCIUM GLUCONATE. [Concomitant]
     Active Substance: CALCIUM GLUCONATE
     Dosage: 2 G, QD
     Route: 042
     Dates: start: 20151216, end: 20151218
  159. LOSEC                                   /CAN/ [Concomitant]
     Indication: PROPHYLAXIS
  160. POTASSIUM CHLORIDE. [Concomitant]
     Active Substance: POTASSIUM CHLORIDE
     Dosage: 12 ML, QD
     Route: 042
     Dates: start: 20151103, end: 20151104
  161. POTASSIUM CHLORIDE. [Concomitant]
     Active Substance: POTASSIUM CHLORIDE
     Dosage: 12 ML, PRN
     Route: 042
     Dates: start: 20151204, end: 20151205
  162. POTASSIUM CHLORIDE. [Concomitant]
     Active Substance: POTASSIUM CHLORIDE
     Dosage: 6 ML, PRN
     Route: 042
     Dates: start: 20151205, end: 20151205

REACTIONS (16)
  - Abdominal distension [Recovering/Resolving]
  - Blood bilirubin increased [Unknown]
  - Bilirubin conjugated increased [Unknown]
  - Lymphocyte count decreased [Unknown]
  - Abdominal pain [Recovering/Resolving]
  - Effusion [Recovering/Resolving]
  - Constipation [Recovering/Resolving]
  - Blood glucose increased [Unknown]
  - Incision site pain [Recovering/Resolving]
  - Renal cyst [Recovering/Resolving]
  - Epididymal disorder [Recovering/Resolving]
  - Blood urea increased [Recovering/Resolving]
  - Overdose [Recovering/Resolving]
  - Procedural pain [Recovering/Resolving]
  - Blood creatinine decreased [Recovering/Resolving]
  - Hepatic cyst [Recovering/Resolving]

NARRATIVE: CASE EVENT DATE: 20151205
